FAERS Safety Report 9260808 (Version 1)
Quarter: 2013Q2

REPORT INFORMATION
  Report Type: Report from Study
  Country: US (occurrence: US)
  Receive Date: 20130429
  Receipt Date: 20130429
  Transmission Date: 20140414
  Serious: Yes (Death)
  Sender: FDA-Public Use
  Company Number: US-SANOFI-AVENTIS-2013SA042872

PATIENT
  Sex: Male

DRUGS (5)
  1. PREDNISONE [Suspect]
     Indication: PROSTATE CANCER
     Route: 048
  2. DOCETAXEL [Suspect]
     Indication: PROSTATE CANCER
     Dosage: ON DAY 1
     Route: 042
  3. INVESTIGATIONAL DRUG [Suspect]
     Indication: PROSTATE CANCER
     Dosage: LOADING DOSE: ADMINISTERED THREE TIMES A DAY
     Route: 048
  4. INVESTIGATIONAL DRUG [Suspect]
     Indication: PROSTATE CANCER
     Dosage: MAINTAINANCE DOSE
     Route: 048
  5. DEXAMETHASONE [Concomitant]
     Indication: PREMEDICATION
     Dosage: 12 H, 3 H, AND 1 H PRIOR TO DOCETAXEL INFUSION
     Route: 048

REACTIONS (2)
  - Myocardial ischaemia [Fatal]
  - Myocardial infarction [Fatal]
